FAERS Safety Report 21910881 (Version 3)
Quarter: 2023Q1

REPORT INFORMATION
  Report Type: Report from Study
  Country: DE (occurrence: DE)
  Receive Date: 20230125
  Receipt Date: 20230215
  Transmission Date: 20230417
  Serious: Yes (Other)
  Sender: FDA-Public Use
  Company Number: DE-ABBVIE-4281458

PATIENT
  Sex: Female

DRUGS (2)
  1. CARBIDOPA\LEVODOPA [Suspect]
     Active Substance: CARBIDOPA\LEVODOPA
     Indication: Parkinson^s disease
     Dosage: MD 3.5ML; CRD 3.5ML/H; CRN 3.0ML /H; ED 1.0ML
     Route: 050
     Dates: start: 20220614
  2. CARBIDOPA\LEVODOPA [Suspect]
     Active Substance: CARBIDOPA\LEVODOPA
     Dosage: CRD: 4.1 ML/HR; CRN: 3.7 ML/HR
     Route: 050

REACTIONS (4)
  - Spinal stenosis [Not Recovered/Not Resolved]
  - Hypovitaminosis [Unknown]
  - Sensory disturbance [Not Recovered/Not Resolved]
  - Immobile [Not Recovered/Not Resolved]
